FAERS Safety Report 22286676 (Version 1)
Quarter: 2023Q2

REPORT INFORMATION
  Report Type: Spontaneous
  Country: US (occurrence: US)
  Receive Date: 20230505
  Receipt Date: 20230505
  Transmission Date: 20230722
  Serious: Yes (Death, Hospitalization, Other)
  Sender: FDA-Public Use
  Company Number: US-009507513-2305USA000257

PATIENT
  Age: 64 Year
  Sex: Female

DRUGS (1)
  1. KEYTRUDA [Suspect]
     Active Substance: PEMBROLIZUMAB
     Dosage: UNK
     Dates: start: 20220610, end: 20230110

REACTIONS (7)
  - Death [Fatal]
  - Malignant neoplasm progression [Unknown]
  - Drug ineffective [Unknown]
  - Fall [Unknown]
  - Eating disorder [Unknown]
  - Insomnia [Unknown]
  - Cough [Unknown]

NARRATIVE: CASE EVENT DATE: 20230227
